FAERS Safety Report 17440829 (Version 2)
Quarter: 2020Q1

REPORT INFORMATION
  Report Type: Report from Study
  Country: GB (occurrence: GB)
  Receive Date: 20200220
  Receipt Date: 20200305
  Transmission Date: 20200409
  Serious: Yes (Hospitalization)
  Sender: FDA-Public Use
  Company Number: PHHO2014GB014147

PATIENT
  Age: 45 Year
  Sex: Female
  Weight: 146 kg

DRUGS (10)
  1. CITALOPRAM [Concomitant]
     Active Substance: CITALOPRAM HYDROBROMIDE
     Indication: DEPRESSED MOOD
     Dosage: 20 MG, QD
     Route: 065
     Dates: start: 20160623
  2. PARACETAMOL [Concomitant]
     Active Substance: ACETAMINOPHEN
     Indication: ANALGESIC THERAPY
     Dosage: 1 G, PRN
     Route: 065
     Dates: start: 20141008
  3. GABAPENTIN. [Concomitant]
     Active Substance: GABAPENTIN
     Indication: MULTIPLE SCLEROSIS
     Dosage: 300 MG, TID
     Route: 065
     Dates: start: 20160623
  4. BAF312 [Suspect]
     Active Substance: SIPONIMOD
     Dosage: 2 MG, UNK
     Route: 048
     Dates: start: 20160630, end: 20170618
  5. D VITAMIN [Concomitant]
     Active Substance: VITAMIN D NOS
     Indication: PROPHYLAXIS
     Dosage: 3000, QID
     Route: 065
     Dates: start: 20160726
  6. SIPONIMOD [Suspect]
     Active Substance: SIPONIMOD
     Indication: SECONDARY PROGRESSIVE MULTIPLE SCLEROSIS
     Dosage: NO TREATMENT
     Route: 065
  7. SIPONIMOD [Suspect]
     Active Substance: SIPONIMOD
     Dosage: UNK
     Route: 048
     Dates: start: 20141023, end: 20151110
  8. BAF312 [Suspect]
     Active Substance: SIPONIMOD
     Indication: MULTIPLE SCLEROSIS
     Dosage: NO TREATMENT
     Route: 065
  9. BAF312 [Suspect]
     Active Substance: SIPONIMOD
     Dosage: UNK
     Route: 048
     Dates: start: 20180630, end: 20200226
  10. PREGABALIN. [Concomitant]
     Active Substance: PREGABALIN
     Indication: NEURALGIA
     Dosage: 300 MG, QD
     Route: 062
     Dates: start: 20150105

REACTIONS (9)
  - Urosepsis [Not Recovered/Not Resolved]
  - Urinary tract infection [Recovered/Resolved]
  - Deep vein thrombosis [Recovered/Resolved]
  - Urinary retention [Not Recovered/Not Resolved]
  - Urinary tract infection [Recovered/Resolved]
  - Urinary tract infection [Recovered/Resolved]
  - Muscular weakness [Not Recovered/Not Resolved]
  - Urinary tract infection [Recovered/Resolved]
  - Urinary tract infection [Recovered/Resolved]

NARRATIVE: CASE EVENT DATE: 20141005
